FAERS Safety Report 4473889-8 (Version None)
Quarter: 2004Q4

REPORT INFORMATION
  Report Type: 
  Country: None (occurrence: None)
  Receive Date: 20041008
  Receipt Date: 20040927
  Transmission Date: 20050328
  Serious: Yes (Hospitalization)
  Sender: FDA-Public Use
  Company Number: BDI-006513

PATIENT
  Sex: Female

DRUGS (1)
  1. PHOSPHOTEC [Suspect]
     Indication: MULTIPLE GATED ACQUISITION SCAN
     Dosage: 3 ML ONCE IV
     Route: 042
     Dates: start: 20040924, end: 20040924

REACTIONS (5)
  - COUGH [None]
  - DRUG INEFFECTIVE [None]
  - EJECTION FRACTION ABNORMAL [None]
  - LUNG INFILTRATION [None]
  - PULMONARY OEDEMA [None]
